FAERS Safety Report 6229675-1 (Version None)
Quarter: 2009Q2

REPORT INFORMATION
  Report Type: 
  Country: None (occurrence: None)
  Receive Date: 20090615
  Receipt Date: 20090609
  Transmission Date: 20091009
  Serious: Yes (Hospitalization)
  Sender: FDA-Public Use
  Company Number: US-ASTRAZENECA-2009UW14691

PATIENT

DRUGS (3)
  1. PULMICORT-100 [Suspect]
     Route: 055
  2. BROVANA [Suspect]
     Dosage: 15 UG/2 ML
     Route: 055
  3. ADVAIR HFA [Concomitant]

REACTIONS (1)
  - INFECTIVE EXACERBATION OF CHRONIC OBSTRUCTIVE AIRWAYS DISEASE [None]
